FAERS Safety Report 25641059 (Version 1)
Quarter: 2025Q3

REPORT INFORMATION
  Report Type: Spontaneous
  Country: US (occurrence: US)
  Receive Date: 20250804
  Receipt Date: 20250804
  Transmission Date: 20251020
  Serious: No
  Sender: SANOFI AVENTIS
  Company Number: US-SA-2025SA222194

PATIENT
  Sex: Female

DRUGS (1)
  1. TZIELD [Suspect]
     Active Substance: TEPLIZUMAB-MZWV
     Indication: Diabetes prophylaxis
     Dosage: 1030 MCG/M2, RECEIVED ON LABEL DOSING DAILY
     Route: 042
     Dates: start: 20250714, end: 20250727

REACTIONS (1)
  - Basophilia [Unknown]

NARRATIVE: CASE EVENT DATE: 20250725
